FAERS Safety Report 5844549-3 (Version None)
Quarter: 2008Q3

REPORT INFORMATION
  Report Type: 
  Country: None (occurrence: None)
  Receive Date: 20080814
  Receipt Date: 20080811
  Transmission Date: 20090109
  Serious: Yes (Hospitalization)
  Sender: FDA-Public Use
  Company Number: PHHO2002FR02751

PATIENT
  Sex: Female
  Weight: 55 kg

DRUGS (9)
  1. EXELON EXELON+CAP [Suspect]
     Indication: DEMENTIA ALZHEIMER'S TYPE
     Dosage: DOSE LEVEL 1
     Route: 048
     Dates: start: 20020121, end: 20020217
  2. EXELON EXELON+CAP [Suspect]
     Dosage: DOSE LEVEL 2
     Route: 048
     Dates: start: 20020218, end: 20020324
  3. TIAPRIDAL [Concomitant]
  4. DAFLON [Concomitant]
  5. FUMAFER [Concomitant]
  6. NITROGLYCERIN [Concomitant]
  7. FORLAX [Concomitant]
  8. ASPIRIN [Concomitant]
  9. IMOVANE [Concomitant]

REACTIONS (15)
  - BLOOD ALBUMIN DECREASED [None]
  - BRADYCARDIA [None]
  - CEREBRAL ATROPHY [None]
  - EXTRASYSTOLES [None]
  - FALL [None]
  - HYPERHIDROSIS [None]
  - HYPOCHROMIC ANAEMIA [None]
  - LEUKOENCEPHALOPATHY [None]
  - MALAISE [None]
  - NAUSEA [None]
  - PALLOR [None]
  - RIB FRACTURE [None]
  - SUPRAVENTRICULAR EXTRASYSTOLES [None]
  - VENTRICULAR EXTRASYSTOLES [None]
  - WEIGHT DECREASED [None]
